FAERS Safety Report 5512596-7 (Version None)
Quarter: 2007Q4

REPORT INFORMATION
  Report Type: 
  Country: None (occurrence: None)
  Receive Date: 20071108
  Receipt Date: 20071108
  Transmission Date: 20080405
  Serious: No
  Sender: FDA-Public Use
  Company Number: None

PATIENT
  Sex: Female
  Weight: 66 kg

DRUGS (2)
  1. CARBOPLATIN [Suspect]
     Dosage: 600 MG
  2. TAXOL [Suspect]
     Dosage: 290 MEV

REACTIONS (1)
  - NEUTROPHIL COUNT ABNORMAL [None]
